FAERS Safety Report 15329821 (Version 3)
Quarter: 2019Q1

REPORT INFORMATION
  Report Type: Spontaneous
  Country: US (occurrence: US)
  Receive Date: 20180829
  Receipt Date: 20190110
  Transmission Date: 20190417
  Serious: No
  Sender: FDA-Public Use
  Company Number: US-PFIZER INC-2018344640

PATIENT
  Age: 77 Year
  Sex: Female
  Weight: 68 kg

DRUGS (2)
  1. IBRANCE [Suspect]
     Active Substance: PALBOCICLIB
     Indication: BREAST CANCER METASTATIC
     Dosage: 100 MG, CYCLIC (DAYS 1-21 Q28 DAYS)
     Route: 048
     Dates: start: 201612
  2. IBRANCE [Suspect]
     Active Substance: PALBOCICLIB
     Dosage: 100 MG, CYCLIC (D1- D21Q 28D)
     Route: 048
     Dates: start: 201712

REACTIONS (8)
  - Muscle spasms [Unknown]
  - Cough [Unknown]
  - Chest pain [Unknown]
  - Bronchitis [Unknown]
  - Fatigue [Unknown]
  - Sinus congestion [Not Recovered/Not Resolved]
  - Dysuria [Unknown]
  - Upper respiratory tract congestion [Not Recovered/Not Resolved]
